FAERS Safety Report 18310341 (Version 1)
Quarter: 2020Q3

REPORT INFORMATION
  Report Type: Spontaneous
  Country: CN (occurrence: CN)
  Receive Date: 20200925
  Receipt Date: 20200925
  Transmission Date: 20201103
  Serious: Yes (Other)
  Sender: FDA-Public Use
  Company Number: CN-ROCHE-2683523

PATIENT
  Age: 60 Year
  Sex: Male

DRUGS (6)
  1. BRIGATINIB [Concomitant]
     Active Substance: BRIGATINIB
     Indication: LUNG CANCER METASTATIC
  2. PEMETREXED. [Concomitant]
     Active Substance: PEMETREXED
     Dates: start: 20200509, end: 20200811
  3. CETUXIMAB. [Concomitant]
     Active Substance: CETUXIMAB
     Indication: LUNG CANCER METASTATIC
  4. AVASTIN [Suspect]
     Active Substance: BEVACIZUMAB
     Route: 065
     Dates: start: 20200509, end: 20200811
  5. PEMETREXED. [Concomitant]
     Active Substance: PEMETREXED
     Indication: LUNG CANCER METASTATIC
     Dates: start: 201911, end: 202003
  6. AVASTIN [Suspect]
     Active Substance: BEVACIZUMAB
     Indication: LUNG CANCER METASTATIC
     Route: 065
     Dates: start: 201911, end: 202003

REACTIONS (8)
  - Back pain [Unknown]
  - Scrotal oedema [Unknown]
  - Penile oedema [Unknown]
  - Blood creatinine increased [Recovered/Resolved]
  - Pyelocaliectasis [Unknown]
  - Benign prostatic hyperplasia [Unknown]
  - Pericardial effusion [Unknown]
  - Blood albumin decreased [Unknown]
